FAERS Safety Report 19045993 (Version 1)
Quarter: 2021Q1

REPORT INFORMATION
  Report Type: Spontaneous
  Country: CA (occurrence: CA)
  Receive Date: 20210322
  Receipt Date: 20210322
  Transmission Date: 20210420
  Serious: Yes (Hospitalization, Other)
  Sender: FDA-Public Use
  Company Number: CA-TEVA-2021-CA-1891956

PATIENT
  Age: 24 Year
  Sex: Male
  Weight: 52 kg

DRUGS (10)
  1. VENLAFAXINE HYDROCHLORIDE. [Suspect]
     Active Substance: VENLAFAXINE HYDROCHLORIDE
     Indication: PRODUCT USED FOR UNKNOWN INDICATION
     Route: 065
  2. QUETIAPINE FUMARATE. [Suspect]
     Active Substance: QUETIAPINE FUMARATE
     Indication: PRODUCT USED FOR UNKNOWN INDICATION
     Route: 048
  3. AZATHIOPRINE. [Concomitant]
     Active Substance: AZATHIOPRINE
     Dosage: 50 MILLIGRAM DAILY;
  4. CLONAZEPAM. [Concomitant]
     Active Substance: CLONAZEPAM
  5. CANNABIS SATIVA [Concomitant]
     Active Substance: CANNABIS SATIVA FLOWERING TOP
  6. DILTIAZEM. [Concomitant]
     Active Substance: DILTIAZEM
  7. PREDNISONE. [Concomitant]
     Active Substance: PREDNISONE
     Route: 048
  8. AZATHIOPRINE. [Concomitant]
     Active Substance: AZATHIOPRINE
  9. SODIUM ALGINATE/SODIUM BICARBONATE [Concomitant]
     Active Substance: SODIUM ALGINATE\SODIUM BICARBONATE
  10. PREDNISONE. [Concomitant]
     Active Substance: PREDNISONE
     Dosage: 40 MILLIGRAM DAILY;
     Route: 048

REACTIONS (10)
  - Cough [Unknown]
  - Anal incontinence [Unknown]
  - Rectal fissure [Unknown]
  - Odynophagia [Unknown]
  - Agitation [Unknown]
  - Poor quality sleep [Unknown]
  - Chest pain [Unknown]
  - Gallbladder polyp [Unknown]
  - Crohn^s disease [Unknown]
  - Drug withdrawal syndrome [Unknown]
